FAERS Safety Report 8583121-1 (Version None)
Quarter: 2012Q3

REPORT INFORMATION
  Report Type: 
  Country: None (occurrence: None)
  Receive Date: 20120809
  Receipt Date: 20120803
  Transmission Date: 20120928
  Serious: No
  Sender: FDA-Public Use
  Company Number: US-ASTRAZENECA-2010SE61311

PATIENT
  Age: 40 Year
  Sex: Female

DRUGS (14)
  1. DIAMOX [Concomitant]
  2. KLONOPIN [Concomitant]
  3. PROZAC [Concomitant]
  4. SEROQUEL [Suspect]
     Route: 048
  5. TRAZODONE HYDROCHLORIDE [Concomitant]
  6. SEROQUEL [Suspect]
     Route: 048
  7. SEROQUEL [Suspect]
     Indication: MIGRAINE
     Dosage: ADDITIONAL 150 MG
     Route: 048
  8. SEROQUEL [Suspect]
     Dosage: 300 MG TAKEN IN THE MORNING AND 250 MAG TAKEN IN THE EVENING
     Route: 048
  9. SEROQUEL [Suspect]
     Dosage: 300 MG TAKEN IN THE MORNING AND 250 MAG TAKEN IN THE EVENING
     Route: 048
  10. SEROQUEL [Suspect]
     Route: 048
  11. SEROQUEL [Suspect]
     Route: 048
  12. ZANAFLEX [Concomitant]
  13. SEROQUEL [Suspect]
     Indication: HEADACHE
     Dosage: ADDITIONAL 150 MG
     Route: 048
  14. CLARIL [Concomitant]

REACTIONS (5)
  - MIGRAINE [None]
  - OFF LABEL USE [None]
  - BRAIN OEDEMA [None]
  - HEADACHE [None]
  - NERVOUS SYSTEM DISORDER [None]
